FAERS Safety Report 5772519-2 (Version None)
Quarter: 2008Q2

REPORT INFORMATION
  Report Type: 
  Country: None (occurrence: None)
  Receive Date: 20080610
  Receipt Date: 20080529
  Transmission Date: 20081010
  Serious: Yes (Hospitalization)
  Sender: FDA-Public Use
  Company Number: 2005BI015174

PATIENT
  Sex: Female
  Weight: 81.6475 kg

DRUGS (1)
  1. AVONEX [Suspect]
     Indication: MULTIPLE SCLEROSIS
     Dosage: 30 UG,QW,IM
     Route: 030
     Dates: start: 20020411, end: 20031201

REACTIONS (8)
  - BLOOD SODIUM ABNORMAL [None]
  - CATHETER RELATED COMPLICATION [None]
  - DEVICE BREAKAGE [None]
  - DRUG DELIVERY DEVICE IMPLANTATION [None]
  - HALLUCINATIONS, MIXED [None]
  - MIGRAINE [None]
  - POST LUMBAR PUNCTURE SYNDROME [None]
  - PULMONARY EMBOLISM [None]
